FAERS Safety Report 10482050 (Version 1)
Quarter: 2014Q3

REPORT INFORMATION
  Report Type: Spontaneous
  Country: US (occurrence: US)
  Receive Date: 20140929
  Receipt Date: 20140929
  Transmission Date: 20150326
  Serious: No
  Sender: FDA-Public Use
  Company Number: US-BAUSCH-BL-2014-002846

PATIENT
  Age: 76 Year
  Sex: Female

DRUGS (1)
  1. ERYTHROMYCIN OPHTHALMIC OINTMENT USP 0.5% [Suspect]
     Active Substance: ERYTHROMYCIN
     Indication: PRODUCT USED FOR UNKNOWN INDICATION
     Dosage: USED ONLY ONE TIME
     Route: 047
     Dates: start: 20140609, end: 20140609

REACTIONS (1)
  - Application site vesicles [Recovering/Resolving]

NARRATIVE: CASE EVENT DATE: 20140609
